FAERS Safety Report 7970688-7 (Version None)
Quarter: 2011Q4

REPORT INFORMATION
  Report Type: 
  Country: None (occurrence: None)
  Receive Date: 20111212
  Receipt Date: 20111202
  Transmission Date: 20120403
  Serious: Yes (Death)
  Sender: FDA-Public Use
  Company Number: FR-NOVOPROD-340832

PATIENT

DRUGS (1)
  1. NOVOSEVEN [Suspect]
     Indication: PRODUCT USED FOR UNKNOWN INDICATION
     Dosage: (100 TWICE)
     Route: 042
     Dates: start: 20110809, end: 20110809

REACTIONS (1)
  - PULMONARY INFARCTION [None]
